FAERS Safety Report 15669134 (Version 4)
Quarter: 2019Q4

REPORT INFORMATION
  Report Type: Spontaneous
  Country: US (occurrence: US)
  Receive Date: 20181129
  Receipt Date: 20191210
  Transmission Date: 20200122
  Serious: Yes (Other)
  Sender: FDA-Public Use
  Company Number: US-ASTRAZENECA-2018SF53520

PATIENT
  Age: 596 Month
  Sex: Male
  Weight: 93.9 kg

DRUGS (38)
  1. ASPIRIN. [Concomitant]
     Active Substance: ASPIRIN
  2. ATORVASTATIN [Concomitant]
     Active Substance: ATORVASTATIN
  3. COLLAGENASE SANTYL [Concomitant]
     Active Substance: COLLAGENASE CLOSTRIDIUM HISTOLYTICUM
     Dosage: FOR 7 DAYS
     Route: 048
     Dates: start: 20081128
  4. TYLENOL [Concomitant]
     Active Substance: ACETAMINOPHEN
     Route: 048
     Dates: start: 20120607
  5. LINZESS [Concomitant]
     Active Substance: LINACLOTIDE
  6. RENVELA [Concomitant]
     Active Substance: SEVELAMER CARBONATE
  7. HUMULIN NOS [Concomitant]
     Active Substance: INSULIN HUMAN
     Dosage: FOR 7 DAYS
     Route: 048
     Dates: start: 20081128
  8. AMLODIPINE [Concomitant]
     Active Substance: AMLODIPINE BESYLATE
     Dosage: FOR 7 DAYS
     Route: 048
     Dates: start: 20081128
  9. AUGMENTIN [Concomitant]
     Active Substance: AMOXICILLIN\CLAVULANATE POTASSIUM
     Route: 048
     Dates: start: 20120607
  10. NEXIUM [Suspect]
     Active Substance: ESOMEPRAZOLE MAGNESIUM
     Indication: GASTROOESOPHAGEAL REFLUX DISEASE
     Route: 048
     Dates: start: 20110823, end: 20160801
  11. PRILOSEC [Suspect]
     Active Substance: OMEPRAZOLE MAGNESIUM
     Route: 048
     Dates: start: 20120314
  12. BETHANECHOL [Concomitant]
     Active Substance: BETHANECHOL
     Route: 048
     Dates: start: 20120607
  13. FLUOXETINE [Concomitant]
     Active Substance: FLUOXETINE HYDROCHLORIDE
  14. METOPROLOL. [Concomitant]
     Active Substance: METOPROLOL
  15. PRILOSEC [Suspect]
     Active Substance: OMEPRAZOLE MAGNESIUM
     Route: 048
  16. CARVEDILOL. [Concomitant]
     Active Substance: CARVEDILOL
  17. AMITIZA [Concomitant]
     Active Substance: LUBIPROSTONE
  18. VEETIDS [Concomitant]
     Active Substance: PENICILLIN V POTASSIUM
     Route: 048
     Dates: start: 20000128
  19. PERCOCET [Concomitant]
     Active Substance: ACETAMINOPHEN\OXYCODONE HYDROCHLORIDE
     Dosage: FOR 7 DAYS
     Route: 048
     Dates: start: 20081128
  20. LANTUS [Concomitant]
     Active Substance: INSULIN GLARGINE
     Dosage: FOR 7 DAYS
     Route: 048
     Dates: start: 20081128
  21. PROTONIX [Suspect]
     Active Substance: PANTOPRAZOLE SODIUM
     Route: 065
  22. PROTONIX [Suspect]
     Active Substance: PANTOPRAZOLE SODIUM
     Route: 065
     Dates: start: 20120703
  23. CLOPIDOGREL [Concomitant]
     Active Substance: CLOPIDOGREL BISULFATE
  24. LOSARTAN. [Concomitant]
     Active Substance: LOSARTAN
  25. TAMSULOSIN [Concomitant]
     Active Substance: TAMSULOSIN
  26. BRILINTA [Concomitant]
     Active Substance: TICAGRELOR
  27. FLUCONAZOLE. [Concomitant]
     Active Substance: FLUCONAZOLE
     Dosage: FOR 7 DAYS
     Route: 048
     Dates: start: 20081128
  28. PROMETHAZINE [Concomitant]
     Active Substance: PROMETHAZINE HYDROCHLORIDE
  29. AMOXICILLIN. [Concomitant]
     Active Substance: AMOXICILLIN
  30. FLOMAX [Concomitant]
     Active Substance: TAMSULOSIN HYDROCHLORIDE
     Dosage: FOR 7 DAYS
     Route: 048
     Dates: start: 20081128
  31. DIOVAN [Concomitant]
     Active Substance: VALSARTAN
     Route: 048
     Dates: start: 20120607
  32. PHENERGAN [Concomitant]
     Active Substance: PROMETHAZINE HYDROCHLORIDE
     Dosage: FOR 7 DAYS
     Route: 048
     Dates: start: 20081128
  33. BETHANECHOL [Concomitant]
     Active Substance: BETHANECHOL
     Dosage: FOR 7 DAYS
     Route: 048
     Dates: start: 20081128
  34. HYDRIN [Concomitant]
     Route: 048
     Dates: start: 20120607
  35. CYCLOBENZAPRINE. [Concomitant]
     Active Substance: CYCLOBENZAPRINE
     Dosage: FOR 7 DAYS
     Route: 048
     Dates: start: 20081128
  36. METOCLOPRAMIDE. [Concomitant]
     Active Substance: METOCLOPRAMIDE
     Dosage: FOR 7 DAYS
     Route: 048
     Dates: start: 20081128
  37. ZOFRAN [Concomitant]
     Active Substance: ONDANSETRON HYDROCHLORIDE
     Route: 048
     Dates: start: 20120607
  38. COLACE [Concomitant]
     Active Substance: DOCUSATE SODIUM
     Route: 048
     Dates: start: 20120607

REACTIONS (7)
  - Chronic kidney disease [Not Recovered/Not Resolved]
  - Hyperparathyroidism secondary [Unknown]
  - End stage renal disease [Unknown]
  - Renal failure [Unknown]
  - Nephrogenic anaemia [Unknown]
  - Acute kidney injury [Unknown]
  - Chronic kidney disease-mineral and bone disorder [Unknown]

NARRATIVE: CASE EVENT DATE: 201208
